FAERS Safety Report 5196281-X (Version None)
Quarter: 2007Q1

REPORT INFORMATION
  Report Type: 
  Country: None (occurrence: None)
  Receive Date: 20070102
  Receipt Date: 20061221
  Transmission Date: 20070707
  Serious: Yes (Other)
  Sender: FDA-Public Use
  Company Number: GB-PFIZER INC-2006150454

PATIENT
  Age: 12 Month
  Sex: Male

DRUGS (1)
  1. XALATAN [Suspect]
     Dosage: FREQ:FREQUENCY: ONCE
     Route: 047

REACTIONS (2)
  - DRUG ADMINISTRATION ERROR [None]
  - WRONG DRUG ADMINISTERED [None]
